FAERS Safety Report 6121100-4 (Version None)
Quarter: 2009Q1

REPORT INFORMATION
  Report Type: 
  Country: None (occurrence: None)
  Receive Date: 20090312
  Receipt Date: 20090312
  Transmission Date: 20090719
  Serious: Yes (Other)
  Sender: FDA-Public Use
  Company Number: None

PATIENT
  Age: 35 Year
  Sex: Male
  Weight: 70.3075 kg

DRUGS (1)
  1. VOLTAREN [Suspect]
     Indication: OSTEOARTHRITIS
     Dosage: 2 GM TWICE DAILY TOP  (3 APPLICATIONS)
     Route: 061
     Dates: start: 20090203, end: 20090310

REACTIONS (4)
  - ABDOMINAL PAIN [None]
  - ANOREXIA [None]
  - MIDDLE INSOMNIA [None]
  - WEIGHT DECREASED [None]
